FAERS Safety Report 4747445-8 (Version None)
Quarter: 2005Q3

REPORT INFORMATION
  Report Type: 
  Country: None (occurrence: None)
  Receive Date: 20050815
  Receipt Date: 20050426
  Transmission Date: 20060218
  Serious: No
  Sender: FDA-Public Use
  Company Number: USA050496612

PATIENT
  Age: 29 Year
  Sex: Male

DRUGS (2)
  1. CIALIS [Suspect]
     Indication: LIBIDO DECREASED
     Dosage: 20 MG AS NEEDED
  2. ANTIDEPRESSANTS [Concomitant]

REACTIONS (3)
  - DRUG INEFFECTIVE [None]
  - PREMATURE EJACULATION [None]
  - THERAPEUTIC RESPONSE DECREASED [None]
